FAERS Safety Report 21263623 (Version 2)
Quarter: 2022Q3

REPORT INFORMATION
  Report Type: Spontaneous
  Country: US (occurrence: US)
  Receive Date: 20220829
  Receipt Date: 20220901
  Transmission Date: 20221026
  Serious: No
  Sender: FDA-Public Use
  Company Number: US-LEO Pharma-344937

PATIENT
  Age: 18 Year
  Sex: Female

DRUGS (2)
  1. ADBRY [Suspect]
     Active Substance: TRALOKINUMAB-LDRM
     Indication: Pruritus
     Dosage: INITIAL DOSE NOT REPORTED THEN AT 300 MG EVERY TWO WEEKS SUBCUTANEOUSLY
     Route: 058
     Dates: start: 20220614
  2. ADBRY [Suspect]
     Active Substance: TRALOKINUMAB-LDRM
     Indication: Neurodermatitis
     Dosage: INITIAL DOSE NOT REPORTED THEN AT 300 MG EVERY TWO WEEKS SUBCUTANEOUSLY
     Route: 058
     Dates: start: 20220614

REACTIONS (3)
  - Urticaria [Unknown]
  - Hypoventilation [Unknown]
  - Product use in unapproved indication [Unknown]
